FAERS Safety Report 9917808 (Version 1)
Quarter: 2014Q1

REPORT INFORMATION
  Report Type: Report from Study
  Country: US (occurrence: US)
  Receive Date: 20140221
  Receipt Date: 20140221
  Transmission Date: 20141002
  Serious: Yes (Hospitalization, Other)
  Sender: FDA-Public Use
  Company Number: US-ABBVIE-14P-163-1202024-00

PATIENT
  Age: 28 Year
  Sex: Female
  Weight: 44.49 kg

DRUGS (3)
  1. HUMIRA [Suspect]
     Indication: CROHN^S DISEASE
     Dosage: INITIAL DOSE
     Dates: start: 2009, end: 2009
  2. HUMIRA [Suspect]
     Dates: start: 2009
  3. HUMIRA [Suspect]
     Dates: start: 2009

REACTIONS (9)
  - Peptic ulcer [Recovered/Resolved]
  - Abdominal pain [Recovered/Resolved]
  - Peptic ulcer [Not Recovered/Not Resolved]
  - Weight decreased [Not Recovered/Not Resolved]
  - Fatigue [Not Recovered/Not Resolved]
  - Abdominal pain [Recovering/Resolving]
  - Crohn^s disease [Recovering/Resolving]
  - Crohn^s disease [Unknown]
  - Full blood count decreased [Unknown]
